FAERS Safety Report 19770087 (Version 1)
Quarter: 2021Q3

REPORT INFORMATION
  Report Type: Spontaneous
  Country: US (occurrence: US)
  Receive Date: 20210831
  Receipt Date: 20210831
  Transmission Date: 20211014
  Serious: Yes (Hospitalization)
  Sender: FDA-Public Use
  Company Number: US-CELGENEUS-USA-20210808297

PATIENT
  Sex: Male
  Weight: 76.73 kg

DRUGS (1)
  1. REVLIMID [Suspect]
     Active Substance: LENALIDOMIDE
     Indication: PLASMA CELL MYELOMA
     Dosage: 25 MILLIGRAM
     Route: 048
     Dates: start: 20210714

REACTIONS (9)
  - Lymphadenopathy [Unknown]
  - Cough [Unknown]
  - Rash [Unknown]
  - Eye irritation [Unknown]
  - Palmar-plantar erythrodysaesthesia syndrome [Unknown]
  - Chest pain [Unknown]
  - Sepsis [Unknown]
  - Pain [Unknown]
  - Stomatitis [Unknown]

NARRATIVE: CASE EVENT DATE: 2021
